FAERS Safety Report 10382521 (Version 1)
Quarter: 2014Q3

REPORT INFORMATION
  Report Type: Spontaneous
  Country: US (occurrence: US)
  Receive Date: 20140813
  Receipt Date: 20140813
  Transmission Date: 20150326
  Serious: No
  Sender: FDA-Public Use
  Company Number: US-SA-2014SA067878

PATIENT
  Age: 83 Year
  Sex: Female

DRUGS (1)
  1. MULTAQ [Suspect]
     Active Substance: DRONEDARONE
     Indication: ATRIAL FIBRILLATION
     Route: 048
     Dates: start: 201310

REACTIONS (6)
  - Dry skin [Unknown]
  - Fatigue [Unknown]
  - Erythema [Unknown]
  - Rash pruritic [Not Recovered/Not Resolved]
  - Skin exfoliation [Unknown]
  - Skin hypertrophy [Unknown]

NARRATIVE: CASE EVENT DATE: 201402
